FAERS Safety Report 15188944 (Version 1)
Quarter: 2018Q3

REPORT INFORMATION
  Report Type: Spontaneous
  Country: US (occurrence: US)
  Receive Date: 20180724
  Receipt Date: 20180724
  Transmission Date: 20181010
  Serious: Yes (Hospitalization, Disabling)
  Sender: FDA-Public Use
  Company Number: US-TEIKOKU PHARMA USA-TPU2018-00440

PATIENT
  Age: 87 Year
  Sex: Male
  Weight: 52.66 kg

DRUGS (13)
  1. PREVACID [Concomitant]
     Active Substance: LANSOPRAZOLE
  2. ZANTAC [Concomitant]
     Active Substance: RANITIDINE HYDROCHLORIDE
  3. LIDODERM [Suspect]
     Active Substance: LIDOCAINE
     Indication: FIBROMYALGIA
  4. PROVENTIL [Concomitant]
     Active Substance: ALBUTEROL
  5. ADVAIR HFA [Concomitant]
     Active Substance: FLUTICASONE PROPIONATE\SALMETEROL XINAFOATE
  6. ROGAINE [Concomitant]
     Active Substance: MINOXIDIL
     Dosage: 1 1/2
  7. LIDODERM [Suspect]
     Active Substance: LIDOCAINE
     Indication: SPINAL COLUMN STENOSIS
  8. SINGULAIR [Concomitant]
     Active Substance: MONTELUKAST SODIUM
  9. BETAMETHASONE VALERATE. [Concomitant]
     Active Substance: BETAMETHASONE VALERATE
     Indication: SKIN DISORDER
  10. SYNTHROID [Concomitant]
     Active Substance: LEVOTHYROXINE SODIUM
  11. MAPROTILINE [Suspect]
     Active Substance: MAPROTILINE
     Indication: FIBROMYALGIA
     Dates: start: 1980
  12. ERGOCALCIFEROL. [Concomitant]
     Active Substance: ERGOCALCIFEROL
  13. TRIAMCINOLONE [Concomitant]
     Active Substance: TRIAMCINOLONE
     Indication: PSORIASIS

REACTIONS (9)
  - Loss of consciousness [Unknown]
  - Body height decreased [Not Recovered/Not Resolved]
  - Hip fracture [Unknown]
  - Hypertension [Unknown]
  - Feeling abnormal [Not Recovered/Not Resolved]
  - Incorrect drug administration duration [Unknown]
  - Dizziness [Unknown]
  - Gait inability [Unknown]
  - Blood glucose decreased [Unknown]

NARRATIVE: CASE EVENT DATE: 20180530
